FAERS Safety Report 13069640 (Version 1)
Quarter: 2016Q4

REPORT INFORMATION
  Report Type: Spontaneous
  Country: US (occurrence: US)
  Receive Date: 20161228
  Receipt Date: 20161228
  Transmission Date: 20170207
  Serious: No
  Sender: FDA-Public Use
  Company Number: US-TAKEDA-2016TUS023081

PATIENT
  Sex: Female

DRUGS (2)
  1. TRINTELLIX [Suspect]
     Active Substance: VORTIOXETINE HYDROBROMIDE
     Indication: DEPRESSION
     Dosage: 15 MG, UNK
     Route: 065
  2. TRINTELLIX [Suspect]
     Active Substance: VORTIOXETINE HYDROBROMIDE
     Indication: POST CONCUSSION SYNDROME
     Dosage: 20 MG, UNK
     Route: 065

REACTIONS (7)
  - Drug dose omission [Recovered/Resolved]
  - Nausea [Not Recovered/Not Resolved]
  - Irritability [Not Recovered/Not Resolved]
  - Weight increased [Unknown]
  - Anorgasmia [Unknown]
  - Tearfulness [Not Recovered/Not Resolved]
  - Malaise [Unknown]

NARRATIVE: CASE EVENT DATE: 201612
